FAERS Safety Report 8281657-4 (Version None)
Quarter: 2012Q2

REPORT INFORMATION
  Report Type: 
  Country: None (occurrence: None)
  Receive Date: 20120413
  Receipt Date: 20120406
  Transmission Date: 20120825
  Serious: Yes (Hospitalization, Other)
  Sender: FDA-Public Use
  Company Number: FR-PFIZER INC-2012085214

PATIENT
  Age: 87 Year
  Sex: Male

DRUGS (4)
  1. PREVISCAN [Interacting]
     Indication: ATRIAL FIBRILLATION
     Dosage: 10 MG, DAILY
     Route: 048
     Dates: end: 20120107
  2. NEXIUM [Concomitant]
     Dosage: UNK
  3. CORDARONE [Suspect]
     Indication: ATRIAL FIBRILLATION
     Dosage: 1 DF, 2X/DAY
     Route: 048
     Dates: start: 20111230, end: 20120107
  4. ISOPTIN [Concomitant]
     Dosage: UNK

REACTIONS (3)
  - INTERNATIONAL NORMALISED RATIO INCREASED [None]
  - DRUG INTERACTION [None]
  - MUSCLE HAEMORRHAGE [None]
